FAERS Safety Report 24912307 (Version 3)
Quarter: 2025Q1

REPORT INFORMATION
  Report Type: Spontaneous
  Country: IT (occurrence: IT)
  Receive Date: 20250131
  Receipt Date: 20250321
  Transmission Date: 20250408
  Serious: Yes (Other)
  Sender: AMERICAN REGENT
  Company Number: IT-AMERICAN REGENT INC-2025000345

PATIENT
  Sex: Male
  Weight: 2.49 kg

DRUGS (8)
  1. FERINJECT [Suspect]
     Active Substance: FERRIC CARBOXYMALTOSE
     Indication: Anaemia of pregnancy
     Route: 064
  2. FERINJECT [Suspect]
     Active Substance: FERRIC CARBOXYMALTOSE
     Route: 064
  3. IMIPENEM [Suspect]
     Active Substance: IMIPENEM
     Indication: Pyrexia
     Route: 064
  4. IMIPENEM [Suspect]
     Active Substance: IMIPENEM
     Route: 064
  5. GENTAMICIN SULFATE [Suspect]
     Active Substance: GENTAMICIN SULFATE
     Indication: Product used for unknown indication
     Route: 064
  6. AMPICILLIN SODIUM [Suspect]
     Active Substance: AMPICILLIN SODIUM
     Indication: Product used for unknown indication
     Route: 064
  7. AMPICILLIN SODIUM [Suspect]
     Active Substance: AMPICILLIN SODIUM
     Route: 064
  8. ACETAMINOPHEN [Suspect]
     Active Substance: ACETAMINOPHEN
     Indication: Pyrexia
     Route: 064

REACTIONS (9)
  - Neonatal respiratory distress syndrome [Recovered/Resolved]
  - Opisthotonus [Recovered/Resolved]
  - Premature baby [Unknown]
  - Condition aggravated [Recovered/Resolved]
  - Irritability [Recovered/Resolved]
  - Vasculitis [Recovered/Resolved]
  - Atrial septal defect [Recovered/Resolved]
  - Atrial septal defect [Recovered/Resolved]
  - Foetal exposure during pregnancy [Unknown]
